FAERS Safety Report 18468052 (Version 1)
Quarter: 2020Q4

REPORT INFORMATION
  Report Type: Spontaneous
  Country: US (occurrence: US)
  Receive Date: 20201104
  Receipt Date: 20201104
  Transmission Date: 20210114
  Serious: No
  Sender: FDA-Public Use
  Company Number: None

PATIENT
  Age: 80 Year
  Sex: Female
  Weight: 75 kg

DRUGS (1)
  1. ORITAVANCIN. [Suspect]
     Active Substance: ORITAVANCIN

REACTIONS (2)
  - Adverse event [None]
  - Therapy interrupted [None]
